FAERS Safety Report 5179655-2 (Version None)
Quarter: 2006Q4

REPORT INFORMATION
  Report Type: 
  Country: None (occurrence: None)
  Receive Date: 20061219
  Receipt Date: 20060127
  Transmission Date: 20070319
  Serious: Yes (Death)
  Sender: FDA-Public Use
  Company Number: KR-SHR-KR-2006-001497

PATIENT
  Age: 6 Year
  Sex: Male

DRUGS (2)
  1. ULTRAVIST 370 [Suspect]
     Dosage: 30 ML, 1 DOSE
     Route: 041
     Dates: start: 20060126, end: 20060126
  2. SODIUM CHLORIDE [Concomitant]
     Dosage: 70 ML, UNK
     Route: 041
     Dates: start: 20060126, end: 20060126

REACTIONS (4)
  - ABDOMINAL PAIN [None]
  - CYANOSIS [None]
  - PALLOR [None]
  - REYE'S SYNDROME [None]
